FAERS Safety Report 5809576-0 (Version None)
Quarter: 2008Q3

REPORT INFORMATION
  Report Type: 
  Country: None (occurrence: None)
  Receive Date: 20080708
  Receipt Date: 20071030
  Transmission Date: 20090109
  Serious: Yes (Disabling)
  Sender: FDA-Public Use
  Company Number: M-07-0961

PATIENT
  Age: 59 Year
  Sex: Male

DRUGS (7)
  1. PACERONE [Suspect]
     Indication: ATRIAL FIBRILLATION
     Dosage: 200 MG, QD, PO
     Route: 048
     Dates: start: 20011001, end: 20040121
  2. HYDROCHLOROTHIAZIDE [Concomitant]
  3. COUMADIN [Concomitant]
  4. DIGOXIN [Concomitant]
  5. PREVACID [Concomitant]
  6. CELEBREX [Concomitant]
  7. TOPROL-XL [Concomitant]

REACTIONS (2)
  - OPTIC NEUROPATHY [None]
  - SCOTOMA [None]
